FAERS Safety Report 7914241-X (Version None)
Quarter: 2011Q4

REPORT INFORMATION
  Report Type: 
  Country: None (occurrence: None)
  Receive Date: 20111115
  Receipt Date: 20111104
  Transmission Date: 20120403
  Serious: Yes (Other)
  Sender: FDA-Public Use
  Company Number: FR-BAXTER-2011BH035346

PATIENT
  Age: 75 Year
  Sex: Male

DRUGS (2)
  1. TEICOPLANIN [Concomitant]
     Indication: SKIN INFECTION
     Route: 065
  2. CEFEPIME [Suspect]
     Indication: SKIN INFECTION
     Route: 065

REACTIONS (2)
  - NEUROTOXICITY [None]
  - RENAL FAILURE [None]
